FAERS Safety Report 8472687-8 (Version None)
Quarter: 2012Q2

REPORT INFORMATION
  Report Type: 
  Country: None (occurrence: None)
  Receive Date: 20120627
  Receipt Date: 20120620
  Transmission Date: 20120825
  Serious: Yes (Hospitalization)
  Sender: FDA-Public Use
  Company Number: FR-SANOFI-AVENTIS-2012SA044008

PATIENT
  Sex: Male

DRUGS (8)
  1. LOVENOX [Suspect]
     Route: 058
     Dates: start: 20120503, end: 20120511
  2. ACETAMINOPHEN [Suspect]
     Indication: ANALGESIC THERAPY
     Route: 048
     Dates: start: 20120503, end: 20120514
  3. NEFOPAM [Suspect]
     Indication: ANALGESIC THERAPY
     Route: 048
     Dates: start: 20120503, end: 20120514
  4. VENTOLIN [Concomitant]
     Indication: ASTHMA
     Dosage: RESPIRATORY ROUTE
  5. OSELTAMIVIR [Concomitant]
     Dosage: DURING 24 HOURS
     Route: 048
  6. ROVAMYCINE [Suspect]
     Route: 042
     Dates: start: 20120503, end: 20120511
  7. CEFTRIAXONE [Suspect]
     Route: 042
     Dates: start: 20120503, end: 20120511
  8. TRAMADOL HCL [Suspect]
     Indication: ANALGESIC THERAPY
     Route: 048
     Dates: start: 20120503, end: 20120514

REACTIONS (1)
  - EOSINOPHILIA [None]
